FAERS Safety Report 17262143 (Version 2)
Quarter: 2020Q1

REPORT INFORMATION
  Report Type: Spontaneous
  Country: NL (occurrence: NL)
  Receive Date: 20200113
  Receipt Date: 20200214
  Transmission Date: 20200409
  Serious: Yes (Life-Threatening)
  Sender: FDA-Public Use
  Company Number: NL-TEVA-2020-NL-1166873

PATIENT
  Age: 57 Year
  Sex: Female
  Weight: 73 kg

DRUGS (1)
  1. CLARITROMYCINE [Suspect]
     Active Substance: CLARITHROMYCIN
     Indication: INFLAMMATION
     Route: 065
     Dates: start: 20191212, end: 20191212

REACTIONS (4)
  - Erythema [Unknown]
  - Swollen tongue [Unknown]
  - Dyspnoea [Recovered/Resolved]
  - Swelling face [Unknown]

NARRATIVE: CASE EVENT DATE: 20191212
